FAERS Safety Report 4984687-0 (Version None)
Quarter: 2006Q2

REPORT INFORMATION
  Report Type: 
  Country: None (occurrence: None)
  Receive Date: 20060427
  Receipt Date: 20050318
  Transmission Date: 20061013
  Serious: Yes (Hospitalization, Disabling)
  Sender: FDA-Public Use
  Company Number: US-MERCK-0503USA03794

PATIENT
  Age: 50 Year
  Sex: Male
  Weight: 97 kg

DRUGS (4)
  1. VIOXX [Suspect]
     Indication: BACK PAIN
     Route: 048
     Dates: start: 20010102, end: 20010801
  2. VIOXX [Suspect]
     Route: 048
     Dates: start: 20031231, end: 20041004
  3. VIOXX [Suspect]
     Indication: INTERVERTEBRAL DISC DEGENERATION
     Route: 048
     Dates: start: 20010102, end: 20010801
  4. VIOXX [Suspect]
     Route: 048
     Dates: start: 20031231, end: 20041004

REACTIONS (15)
  - ADJUSTMENT DISORDER [None]
  - ANAESTHETIC COMPLICATION [None]
  - ANXIETY [None]
  - BLOOD CHOLESTEROL INCREASED [None]
  - CAROTID ARTERY STENOSIS [None]
  - CEREBRAL INFARCTION [None]
  - CEREBROVASCULAR ACCIDENT [None]
  - HYPERTENSION [None]
  - HYPOREFLEXIA [None]
  - IMPAIRED WORK ABILITY [None]
  - LYMPHANGITIS [None]
  - MAJOR DEPRESSION [None]
  - PARAESTHESIA [None]
  - SOMNOLENCE [None]
  - TRANSIENT ISCHAEMIC ATTACK [None]
